FAERS Safety Report 19481466 (Version 5)
Quarter: 2021Q3

REPORT INFORMATION
  Report Type: Spontaneous
  Country: US (occurrence: US)
  Receive Date: 20210701
  Receipt Date: 20210928
  Transmission Date: 20211014
  Serious: No
  Sender: FDA-Public Use
  Company Number: US-PFIZER INC-2021665011

PATIENT

DRUGS (1)
  1. DEPO?PROVERA [Suspect]
     Active Substance: MEDROXYPROGESTERONE ACETATE
     Indication: CONTRACEPTION
     Dosage: UNK

REACTIONS (11)
  - Device malfunction [Unknown]
  - Device difficult to use [Unknown]
  - Product administration error [Unknown]
  - Accidental exposure to product [Unknown]
  - Incorrect dose administered by device [Unknown]
  - Device issue [Unknown]
  - Injury associated with device [Unknown]
  - Exposure via skin contact [Unknown]
  - Device leakage [Unknown]
  - Device breakage [Unknown]
  - Device use error [Unknown]
